FAERS Safety Report 4760949-7 (Version None)
Quarter: 2005Q3

REPORT INFORMATION
  Report Type: 
  Country: None (occurrence: None)
  Receive Date: 20050901
  Receipt Date: 20050818
  Transmission Date: 20060218
  Serious: Yes (Hospitalization, Other)
  Sender: FDA-Public Use
  Company Number: 200987

PATIENT
  Age: 48 Year
  Sex: Male
  Weight: 140 kg

DRUGS (6)
  1. AVONEX [Suspect]
     Indication: MULTIPLE SCLEROSIS
     Dosage: SEE IMAGE
     Route: 030
     Dates: start: 19980101, end: 20020501
  2. AVONEX [Suspect]
     Indication: MULTIPLE SCLEROSIS
     Dosage: SEE IMAGE
     Route: 030
     Dates: start: 20020501, end: 20021101
  3. AVONEX [Suspect]
     Indication: MULTIPLE SCLEROSIS
     Dosage: SEE IMAGE
     Route: 030
     Dates: start: 20040601
  4. ZANAFLEX [Concomitant]
  5. OXYBUTYNIN [Concomitant]
  6. FLOMAX [Concomitant]

REACTIONS (4)
  - CONVULSION [None]
  - INFLUENZA LIKE ILLNESS [None]
  - PYREXIA [None]
  - WEIGHT DECREASED [None]
